FAERS Safety Report 8831126 (Version 1)
Quarter: 2012Q4

REPORT INFORMATION
  Report Type: 
  Country: US (occurrence: US)
  Receive Date: 20121009
  Receipt Date: 20121009
  Transmission Date: 20130627
  Serious: Yes (Hospitalization, Other)
  Sender: FDA-Public Use
  Company Number: US-SANOFI-AVENTIS-2012SA070913

PATIENT
  Age: 62 Year
  Sex: Male

DRUGS (6)
  1. PLAVIX [Suspect]
     Route: 048
  2. XARELTO [Suspect]
     Indication: ATRIAL FIBRILLATION
     Route: 048
     Dates: start: 2012, end: 201208
  3. XARELTO [Suspect]
     Indication: CEREBROVASCULAR ACCIDENT PROPHYLAXIS
     Route: 048
     Dates: start: 2012, end: 201208
  4. ASPIRIN [Suspect]
     Route: 065
  5. AMIODARONE [Concomitant]
  6. DIGOXIN [Concomitant]

REACTIONS (8)
  - Gastrointestinal arteriovenous malformation [Unknown]
  - Gastrointestinal haemorrhage [Recovered/Resolved]
  - Haematochezia [Recovered/Resolved]
  - Dyspnoea [Recovered/Resolved]
  - Asthenia [Recovered/Resolved]
  - Haemoglobin decreased [Recovered/Resolved]
  - Haematemesis [Recovered/Resolved]
  - Chest pain [Recovered/Resolved]
